FAERS Safety Report 5961686-3 (Version None)
Quarter: 2008Q4

REPORT INFORMATION
  Report Type: 
  Country: None (occurrence: None)
  Receive Date: 20081119
  Receipt Date: 20081104
  Transmission Date: 20090506
  Serious: Yes (Hospitalization)
  Sender: FDA-Public Use
  Company Number: DSJ-2008-13698

PATIENT
  Age: 75 Year
  Sex: Female

DRUGS (6)
  1. OFLOXACIN [Suspect]
     Indication: EAR INFECTION
     Dosage: 1.5 MG, AURICULAR (OTIC)
     Route: 001
     Dates: start: 20080122, end: 20080214
  2. VANCOMYCIN HYDROCHLORIDE [Suspect]
     Indication: EAR INFECTION
     Dosage: 2 GM, INTRAVENOUS (NOT OTHERWISE SPECIFIED)
     Route: 042
     Dates: start: 20080126, end: 20080204
  3. TICAR [Suspect]
     Indication: EAR INFECTION
     Dosage: 15 MG, INTRAVENOUS (NOT OTHERWISE SPECIFIED)
     Route: 042
     Dates: start: 20071213, end: 20080210
  4. CIPROFLOXACIN HCL [Suspect]
     Indication: EAR INFECTION
     Dosage: 1200 MG, INTRAVENOUS (NOT OTHERWISE SPECIFIED)
     Route: 042
     Dates: start: 20071130, end: 20080210
  5. ATARAX [Suspect]
     Indication: DRUG USE FOR UNKNOWN INDICATION
     Dosage: 25 MG, PER ORAL
     Route: 048
     Dates: start: 20080116, end: 20080214
  6. ZOLPIDEM TARTRATE [Suspect]
     Indication: DRUG USE FOR UNKNOWN INDICATION
     Dosage: 10 MG, PER ORAL
     Route: 048
     Dates: start: 20071218, end: 20080214

REACTIONS (3)
  - DRUG RASH WITH EOSINOPHILIA AND SYSTEMIC SYMPTOMS [None]
  - PNEUMONIA [None]
  - RESPIRATORY DISTRESS [None]
